FAERS Safety Report 8996650 (Version 2)
Quarter: 2013Q1

REPORT INFORMATION
  Report Type: Spontaneous
  Country: US (occurrence: US)
  Receive Date: 20130104
  Receipt Date: 20130222
  Transmission Date: 20140127
  Serious: Yes (Other)
  Sender: FDA-Public Use
  Company Number: US-BAYER-2013-000819

PATIENT
  Sex: Female
  Weight: 75.87 kg

DRUGS (7)
  1. MIRENA [Suspect]
     Indication: CONTRACEPTION
     Dosage: 20 MCG/24HR, CONT
     Route: 015
     Dates: start: 20121109, end: 20130102
  2. MIRENA [Suspect]
     Indication: MENORRHAGIA
  3. BACLOFEN [Concomitant]
     Dosage: 30 MG, QD
  4. BACLOFEN [Concomitant]
     Dosage: 15 MG, HS
  5. PEPCID [Concomitant]
     Dosage: 40 MG, BID
  6. OMEPRAZOLE [Concomitant]
     Dosage: 40 MG, QD
  7. NUVARING [Concomitant]
     Dosage: 1 DF, Q3WK

REACTIONS (7)
  - Genital haemorrhage [None]
  - Abdominal pain lower [None]
  - Vaginal haemorrhage [None]
  - Coital bleeding [None]
  - Menorrhagia [None]
  - Device expulsion [None]
  - Device issue [None]
